FAERS Safety Report 26112219 (Version 3)
Quarter: 2025Q4

REPORT INFORMATION
  Report Type: Report from Study
  Country: EU (occurrence: EU)
  Receive Date: 20251202
  Receipt Date: 20251211
  Transmission Date: 20260117
  Serious: Yes (Hospitalization)
  Sender: ABBVIE
  Company Number: EU-ABBVIE-6570423

PATIENT
  Age: 75 Year
  Sex: Female

DRUGS (6)
  1. FOSCARBIDOPA\FOSLEVODOPA [Suspect]
     Active Substance: FOSCARBIDOPA\FOSLEVODOPA
     Indication: Parkinson^s disease
     Dosage: BASE: 0.42ML/H, LOW: 0.33ML/H, HIGH: 0.46ML/H, ED: 0.20ML
     Route: 058
     Dates: start: 20251128, end: 20251129
  2. FOSCARBIDOPA\FOSLEVODOPA [Suspect]
     Active Substance: FOSCARBIDOPA\FOSLEVODOPA
     Dosage: BASE: 0.46ML/H, HIGH: 0.50ML/H, LOW: 0.37ML/H, ED:0.20ML
     Route: 058
     Dates: start: 20251129, end: 2025
  3. FOSCARBIDOPA\FOSLEVODOPA [Suspect]
     Active Substance: FOSCARBIDOPA\FOSLEVODOPA
     Dosage: LD: 1.2 ML, CR: LOW 0.30 ML/H, BASE: 0.38 L/H, HIGH: 0.41 ML/H, ED: 0.15 ML.
     Route: 058
     Dates: start: 20251127, end: 20251128
  4. FOSCARBIDOPA\FOSLEVODOPA [Suspect]
     Active Substance: FOSCARBIDOPA\FOSLEVODOPA
     Dosage: LD: 1.2ML, CR: LOW 0.40ML/H, BASE: 0.46ML/H, HIGH: 0.50ML/H, ED: 0.20ML
     Route: 058
     Dates: start: 2025
  5. LEVOTHYROXINE [Concomitant]
     Active Substance: LEVOTHYROXINE
     Indication: Hypothyroidism
     Dosage: 88 MICROGRAM/ 1X1
     Route: 048
  6. LEVOTHYROXINE [Concomitant]
     Active Substance: LEVOTHYROXINE
     Indication: Hypothyroidism
     Route: 048

REACTIONS (13)
  - Muscle rigidity [Not Recovered/Not Resolved]
  - Epilepsy [Recovered/Resolved]
  - Loss of consciousness [Recovered/Resolved]
  - Myoclonus [Unknown]
  - Speech disorder [Recovered/Resolved]
  - Fatigue [Recovered/Resolved]
  - Headache [Recovered/Resolved]
  - Hypertension [Recovered/Resolved]
  - Myoclonic epilepsy [Recovered/Resolved]
  - Bradykinesia [Not Recovered/Not Resolved]
  - Anaemia [Not Recovered/Not Resolved]
  - Cardiac amyloidosis [Not Recovered/Not Resolved]
  - Musculoskeletal stiffness [Unknown]

NARRATIVE: CASE EVENT DATE: 20250101
